FAERS Safety Report 25746435 (Version 1)
Quarter: 2025Q3

REPORT INFORMATION
  Report Type: Other
  Country: IN (occurrence: IN)
  Receive Date: 20250901
  Receipt Date: 20250901
  Transmission Date: 20251021
  Serious: Yes (Hospitalization, Other)
  Sender: ANI
  Company Number: IN-ANIPHARMA-024309

PATIENT
  Age: 64 Year
  Sex: Male

DRUGS (3)
  1. LEUCOVORIN [Suspect]
     Active Substance: LEUCOVORIN\LEUCOVORIN CALCIUM
     Indication: Colon cancer stage III
     Dates: start: 201801, end: 201806
  2. FLUOROURACIL [Concomitant]
     Active Substance: FLUOROURACIL
     Indication: Colon cancer stage III
     Dates: start: 201801, end: 201806
  3. OXALIPLATIN [Concomitant]
     Active Substance: OXALIPLATIN
     Indication: Colon cancer stage III
     Dates: start: 201801, end: 201806

REACTIONS (5)
  - Neuropathy peripheral [Recovered/Resolved]
  - Rectal haemorrhage [Recovered/Resolved]
  - Stomatitis [Recovered/Resolved]
  - Constipation [Recovered/Resolved]
  - Full blood count decreased [Recovered/Resolved]
